FAERS Safety Report 14435398 (Version 1)
Quarter: 2018Q1

REPORT INFORMATION
  Report Type: Report from Study
  Country: IT (occurrence: IT)
  Receive Date: 20180125
  Receipt Date: 20180125
  Transmission Date: 20180509
  Serious: Yes (Life-Threatening, Hospitalization)
  Sender: FDA-Public Use
  Company Number: IT-ROCHE-1974523

PATIENT
  Age: 42 Year
  Sex: Female
  Weight: 55 kg

DRUGS (11)
  1. PERTUZUMAB. [Suspect]
     Active Substance: PERTUZUMAB
     Indication: HER-2 POSITIVE BREAST CANCER
     Dosage: MOST RECENT DOSE PRIOR TO THE EVENT: 31/MAR/2017
     Route: 042
     Dates: start: 20170310
  2. FUROSEMIDE. [Concomitant]
     Active Substance: FUROSEMIDE
     Indication: CARDIAC DISORDER
     Dosage: ONGOING = CHECKED
     Route: 065
     Dates: start: 20170616
  3. MORFINA [Concomitant]
     Active Substance: MORPHINE HYDROCHLORIDE
     Dosage: ONGOING = CHECKED
     Route: 065
     Dates: start: 20170616
  4. DIAZEPAM. [Concomitant]
     Active Substance: DIAZEPAM
     Dosage: ONGOING = CHECKED
     Route: 065
     Dates: start: 20170616
  5. PREGABALIN. [Concomitant]
     Active Substance: PREGABALIN
     Indication: DYSPNOEA
     Dosage: ONGOING = CHECKED
     Route: 065
     Dates: start: 20170616
  6. ENOXAPARINA [Concomitant]
     Active Substance: ENOXAPARIN
     Indication: DYSPNOEA
     Dosage: ONGOING = CHECKED
     Route: 065
     Dates: start: 20170616
  7. TRASTUZUMAB. [Suspect]
     Active Substance: TRASTUZUMAB
     Indication: HER-2 POSITIVE BREAST CANCER
     Dosage: MOST RECENT DOSE PRIOR TO THE EVENT: 31/MAR/2017
     Route: 042
     Dates: start: 20170310
  8. TAXOL [Suspect]
     Active Substance: PACLITAXEL
     Indication: HER-2 POSITIVE BREAST CANCER
     Route: 042
     Dates: start: 20170310, end: 20170526
  9. SOLDESAM [Concomitant]
     Active Substance: DEXAMETHASONE
     Dosage: ONGOING = CHECKED
     Route: 065
     Dates: start: 20170616
  10. RANITIDINE. [Concomitant]
     Active Substance: RANITIDINE
     Dosage: ONGOING = CHECKED
     Route: 065
     Dates: start: 20170616
  11. OSSICODONE [Concomitant]
     Route: 065
     Dates: end: 20170526

REACTIONS (2)
  - Dyspnoea [Recovered/Resolved with Sequelae]
  - Cardiac disorder [Recovered/Resolved with Sequelae]

NARRATIVE: CASE EVENT DATE: 20170519
